FAERS Safety Report 6768509-3 (Version None)
Quarter: 2010Q2

REPORT INFORMATION
  Report Type: 
  Country: None (occurrence: None)
  Receive Date: 20100614
  Receipt Date: 20100602
  Transmission Date: 20101027
  Serious: Yes (Other)
  Sender: FDA-Public Use
  Company Number: US-PFIZER INC-2010070008

PATIENT
  Sex: Female
  Weight: 61.224 kg

DRUGS (3)
  1. DETROL LA [Suspect]
     Indication: HYPERTONIC BLADDER
     Dosage: 2 MG, 1X/DAY
     Route: 048
     Dates: start: 20100401, end: 20100401
  2. DETROL LA [Suspect]
     Dosage: 2 MG, 2X/DAY
     Dates: start: 20100401, end: 20100501
  3. TOVIAZ [Suspect]
     Indication: HYPERTONIC BLADDER
     Dosage: 4 MG, DAILY
     Route: 048
     Dates: start: 20100501

REACTIONS (5)
  - DRUG INEFFECTIVE [None]
  - HYPERTENSION [None]
  - MIDDLE INSOMNIA [None]
  - UNEVALUABLE EVENT [None]
  - VISION BLURRED [None]
